FAERS Safety Report 13346316 (Version 1)
Quarter: 2017Q1

REPORT INFORMATION
  Report Type: Spontaneous
  Country: US (occurrence: US)
  Receive Date: 20170317
  Receipt Date: 20170317
  Transmission Date: 20170428
  Serious: Yes (Other)
  Sender: FDA-Public Use
  Company Number: None

PATIENT
  Age: 79 Year
  Sex: Male
  Weight: 72 kg

DRUGS (17)
  1. SINGULAIR [Concomitant]
     Active Substance: MONTELUKAST SODIUM
  2. ALLOPURINOL. [Concomitant]
     Active Substance: ALLOPURINOL
  3. FLOMAX [Concomitant]
     Active Substance: TAMSULOSIN HYDROCHLORIDE
  4. ACTAVIS LIDOCAINE PATCH 5% [Suspect]
     Active Substance: LIDOCAINE
     Indication: PAIN
     Dosage: ?          QUANTITY:1 PATCH(ES);?
     Route: 062
     Dates: start: 20170316, end: 20170317
  5. AMLODOPINE [Concomitant]
     Active Substance: AMLODIPINE BESYLATE
  6. GLIMPERIDE [Concomitant]
     Active Substance: GLIMEPIRIDE
  7. ACTAVIS LIDOCAINE PATCH 5% [Suspect]
     Active Substance: LIDOCAINE
     Indication: CONTUSION
     Dosage: ?          QUANTITY:1 PATCH(ES);?
     Route: 062
     Dates: start: 20170316, end: 20170317
  8. CALCIUM [Concomitant]
     Active Substance: CALCIUM
  9. CLOPIDOGREL [Concomitant]
     Active Substance: CLOPIDOGREL BISULFATE
  10. LOSATAN [Concomitant]
     Active Substance: LOSARTAN
  11. IMDUR [Concomitant]
     Active Substance: ISOSORBIDE MONONITRATE
  12. MULTI VITAMIN [Concomitant]
     Active Substance: VITAMINS
  13. METFORMIN [Concomitant]
     Active Substance: METFORMIN HYDROCHLORIDE
  14. TYLENOL [Concomitant]
     Active Substance: ACETAMINOPHEN
  15. ESCIATALOPRAM [Concomitant]
  16. LASIX [Concomitant]
     Active Substance: FUROSEMIDE
  17. METOPROLOL. [Concomitant]
     Active Substance: METOPROLOL

REACTIONS (3)
  - Cough [None]
  - Dyspnoea [None]
  - Application site warmth [None]

NARRATIVE: CASE EVENT DATE: 20170317
